FAERS Safety Report 9625492 (Version 2)
Quarter: 2013Q4

REPORT INFORMATION
  Report Type: Spontaneous
  Country: JP (occurrence: JP)
  Receive Date: 20131016
  Receipt Date: 20131018
  Transmission Date: 20140711
  Serious: Yes (Hospitalization)
  Sender: FDA-Public Use
  Company Number: JP-PFIZER INC-2013293676

PATIENT
  Age: 74 Year
  Sex: Female

DRUGS (1)
  1. ZOSYN [Suspect]
     Dosage: UNK
     Route: 041
     Dates: start: 201203, end: 201204

REACTIONS (1)
  - Drug eruption [Unknown]
